FAERS Safety Report 21682893 (Version 1)
Quarter: 2022Q4

REPORT INFORMATION
  Report Type: Spontaneous
  Country: US (occurrence: US)
  Receive Date: 20221205
  Receipt Date: 20221205
  Transmission Date: 20230113
  Serious: No
  Sender: FDA-Public Use
  Company Number: US-Emergent Biosolutions-22000261

PATIENT
  Sex: Female

DRUGS (2)
  1. NALOXONE HYDROCHLORIDE [Suspect]
     Active Substance: NALOXONE HYDROCHLORIDE
     Indication: Overdose
     Dosage: UNK
     Route: 045
  2. OXYCODONE [Suspect]
     Active Substance: OXYCODONE
     Indication: Restless legs syndrome
     Dosage: UNK
     Route: 065

REACTIONS (3)
  - Burning sensation [Unknown]
  - Drug withdrawal syndrome [Unknown]
  - Unintentional use for unapproved indication [Unknown]
